APPROVED DRUG PRODUCT: PROCHLORPERAZINE
Active Ingredient: PROCHLORPERAZINE
Strength: 25MG
Dosage Form/Route: SUPPOSITORY;RECTAL
Application: A040058 | Product #001 | TE Code: AB
Applicant: COSETTE PHARMACEUTICALS INC
Approved: Nov 24, 1993 | RLD: No | RS: Yes | Type: RX